FAERS Safety Report 20485085 (Version 1)
Quarter: 2022Q1

REPORT INFORMATION
  Report Type: Spontaneous
  Country: RU (occurrence: None)
  Receive Date: 20220217
  Receipt Date: 20220217
  Transmission Date: 20220423
  Serious: Yes (Other)
  Sender: FDA-Public Use
  Company Number: RU-ROCHE-3024991

PATIENT
  Age: 60 Year
  Sex: Male

DRUGS (2)
  1. VEMURAFENIB [Suspect]
     Active Substance: VEMURAFENIB
     Indication: Product used for unknown indication
     Route: 065
  2. COBIMETINIB [Suspect]
     Active Substance: COBIMETINIB
     Indication: Product used for unknown indication
     Route: 048

REACTIONS (6)
  - Soft tissue neoplasm [Unknown]
  - Asthenia [Unknown]
  - Malaise [Unknown]
  - Dyspnoea exertional [Unknown]
  - Cough [Unknown]
  - Epistaxis [Unknown]
